FAERS Safety Report 18031811 (Version 2)
Quarter: 2020Q3

REPORT INFORMATION
  Report Type: Report from Study
  Country: US (occurrence: US)
  Receive Date: 20200716
  Receipt Date: 20200727
  Transmission Date: 20201103
  Serious: Yes (Other)
  Sender: FDA-Public Use
  Company Number: US-ASTELLAS-2020US021575

PATIENT
  Age: 89 Year
  Sex: Male

DRUGS (1)
  1. ENZALUTAMIDE [Suspect]
     Active Substance: ENZALUTAMIDE
     Indication: PRODUCT USED FOR UNKNOWN INDICATION
     Dosage: 160 MG, ONCE DAILY (4 CAPSULES)
     Route: 065
     Dates: start: 20200609

REACTIONS (2)
  - Flatulence [Unknown]
  - Deafness [Unknown]

NARRATIVE: CASE EVENT DATE: 20200622
